FAERS Safety Report 13676854 (Version 4)
Quarter: 2018Q1

REPORT INFORMATION
  Report Type: Report from Study
  Country: IT (occurrence: IT)
  Receive Date: 20170622
  Receipt Date: 20180305
  Transmission Date: 20180508
  Serious: Yes (Other)
  Sender: FDA-Public Use
  Company Number: IT-ACCORD-052384

PATIENT
  Age: 51 Year
  Sex: Male
  Weight: 72 kg

DRUGS (9)
  1. MANNITOL. [Concomitant]
     Active Substance: MANNITOL
     Indication: CONSTIPATION
     Dosage: ALSO RECEIVED FROM 14-SEP-2016
     Dates: start: 20160907
  2. FLUOROURACIL ACCORD [Suspect]
     Active Substance: FLUOROURACIL
     Indication: TONGUE NEOPLASM MALIGNANT STAGE UNSPECIFIED
     Dosage: 3920 MG CYCLICAL, 3780 MG CYCLICAL?ALSO RECEIVED 2000 MG/M2 FROM 05-SEP-2016
     Route: 042
     Dates: start: 20160905
  3. AUGMENTIN [Concomitant]
     Active Substance: AMOXICILLIN\CLAVULANATE POTASSIUM
     Indication: PRODUCT USED FOR UNKNOWN INDICATION
     Dates: start: 20160913, end: 20160918
  4. MAGNESIUM HYDROXIDE. [Concomitant]
     Active Substance: MAGNESIUM HYDROXIDE
     Indication: HYPOMAGNESAEMIA
  5. AUREOMICINA [Concomitant]
     Indication: PRODUCT USED FOR UNKNOWN INDICATION
     Dates: start: 20160914
  6. CISPLATIN ACCORD HEALTHCARE [Suspect]
     Active Substance: CISPLATIN
     Indication: TONGUE NEOPLASM MALIGNANT STAGE UNSPECIFIED
     Dosage: 196 MG CYCLICAL, 189 CYCLICAL?ALSO RECEIVED 100 MG/M2
     Route: 042
     Dates: start: 20160905
  7. ERBITUX [Suspect]
     Active Substance: CETUXIMAB
     Indication: TONGUE NEOPLASM MALIGNANT STAGE UNSPECIFIED
     Dosage: 250 MG/M2 CYCLICAL, 400 MG/M2 FROM 05-SEP-2016?ALSO RECEIVED 200 MG/M2 FROM 10-JAN-2017
     Route: 042
     Dates: start: 20160905
  8. BENTELAN [Concomitant]
     Active Substance: BETAMETHASONE SODIUM PHOSPHATE
     Indication: PRODUCT USED FOR UNKNOWN INDICATION
     Dates: start: 20160920
  9. MYCOSTATIN [Concomitant]
     Active Substance: NYSTATIN
     Indication: PRODUCT USED FOR UNKNOWN INDICATION
     Dates: start: 20160919

REACTIONS (15)
  - Candida infection [Recovered/Resolved]
  - Xerosis [Unknown]
  - Mucosal inflammation [Recovered/Resolved]
  - Skin toxicity [Not Recovered/Not Resolved]
  - Skin infection [Not Recovered/Not Resolved]
  - Hypoacusis [Not Recovered/Not Resolved]
  - Angular cheilitis [Unknown]
  - Vomiting [Recovered/Resolved]
  - Decreased appetite [Not Recovered/Not Resolved]
  - Erythema [Recovering/Resolving]
  - Oral herpes [Unknown]
  - Nausea [Recovered/Resolved]
  - Herpes virus infection [Not Recovered/Not Resolved]
  - Neutropenia [Recovered/Resolved]
  - Asthenia [Not Recovered/Not Resolved]

NARRATIVE: CASE EVENT DATE: 20160905
